FAERS Safety Report 8995698 (Version 3)
Quarter: 2013Q2

REPORT INFORMATION
  Report Type: Spontaneous
  Country: US (occurrence: US)
  Receive Date: 20130103
  Receipt Date: 20130626
  Transmission Date: 20140414
  Serious: Yes (Hospitalization, Other)
  Sender: FDA-Public Use
  Company Number: US-009507513-1201USA03062

PATIENT
  Sex: Female

DRUGS (3)
  1. FOSAMAX [Suspect]
     Indication: OSTEOPOROSIS
     Dosage: 70 MG, QW
     Route: 048
     Dates: start: 20080310, end: 200904
  2. FOSAMAX [Suspect]
     Indication: OSTEOPOROSIS
     Dosage: 70 MG, QW
     Route: 048
     Dates: start: 2001, end: 200803
  3. FOSAMAX [Suspect]
     Indication: OSTEOPOROSIS
     Dosage: 10 MG, QD
     Route: 048
     Dates: start: 199911, end: 20011214

REACTIONS (14)
  - Knee arthroplasty [Unknown]
  - Femur fracture [Recovered/Resolved]
  - Open reduction of fracture [Unknown]
  - Fracture malunion [Recovered/Resolved]
  - Normochromic normocytic anaemia [Unknown]
  - Low turnover osteopathy [Unknown]
  - Secretion discharge [Unknown]
  - Knee deformity [Unknown]
  - Atrial fibrillation [Unknown]
  - Urge incontinence [Unknown]
  - Gait disturbance [Unknown]
  - Hypercholesterolaemia [Unknown]
  - Diarrhoea [Unknown]
  - Arthralgia [Not Recovered/Not Resolved]
